FAERS Safety Report 4313782-4 (Version None)
Quarter: 2004Q1

REPORT INFORMATION
  Report Type: 
  Country: None (occurrence: None)
  Receive Date: 20040305
  Receipt Date: 20040226
  Transmission Date: 20041129
  Serious: Yes (Life-Threatening, Hospitalization)
  Sender: FDA-Public Use
  Company Number: F01200400385

PATIENT
  Age: 64 Year
  Sex: Male

DRUGS (5)
  1. (OXALIPLATIN) - SOLUTION - 250 MG [Suspect]
     Indication: COLON CANCER
     Dosage: 250 MG Q3W INTRAVENOUS NOS
     Route: 042
     Dates: start: 20031128, end: 20031128
  2. (CAPECITABINE) - TABLET - 2000 MG [Suspect]
     Dosage: 2000 MG TWICE A DAY (Q3W) ORAL
     Route: 048
     Dates: start: 20031128, end: 20031219
  3. LORAZEPAM [Concomitant]
  4. METFORMIN HYDROCHLORIDE (METFORMIN HCL) [Concomitant]
  5. INSULIN MIXTARD (INSULIN INJECTION, ISOPHANE) [Concomitant]

REACTIONS (2)
  - DUODENAL ULCER HAEMORRHAGE [None]
  - GASTROINTESTINAL MUCOSAL NECROSIS [None]
